FAERS Safety Report 10596418 (Version 1)
Quarter: 2014Q4

REPORT INFORMATION
  Report Type: Spontaneous
  Country: US (occurrence: US)
  Receive Date: 20141120
  Receipt Date: 20141120
  Transmission Date: 20150529
  Serious: Yes (Other)
  Sender: FDA-Public Use
  Company Number: US-PFIZER INC-2014315119

PATIENT
  Age: 32 Year
  Sex: Male

DRUGS (2)
  1. SULFAMETHOXAZOLE/TRIMETHOPRIM [Suspect]
     Active Substance: SULFAMETHOXAZOLE\TRIMETHOPRIM
     Dosage: ONE DOUBLE-STRENGTH TABLET
     Route: 048
  2. SULFAMETHOXAZOLE/TRIMETHOPRIM [Suspect]
     Active Substance: SULFAMETHOXAZOLE\TRIMETHOPRIM
     Indication: PNEUMOCYSTIS JIROVECII PNEUMONIA
     Dosage: UNK
     Route: 042

REACTIONS (8)
  - Pyrexia [Recovered/Resolved]
  - Dyspnoea [Unknown]
  - Cytopenia [None]
  - Pneumocystis jirovecii pneumonia [None]
  - Syncope [Unknown]
  - Rash maculo-papular [Recovered/Resolved]
  - Abscess [None]
  - Headache [Unknown]
